FAERS Safety Report 19430044 (Version 4)
Quarter: 2021Q3

REPORT INFORMATION
  Report Type: Report from Study
  Country: US (occurrence: US)
  Receive Date: 20210617
  Receipt Date: 20210723
  Transmission Date: 20211014
  Serious: Yes (Hospitalization)
  Sender: FDA-Public Use
  Company Number: US-B.I. PHARMACEUTICALS,INC./RIDGEFIELD-2021-BI-102927

PATIENT
  Age: 74 Year
  Sex: Female
  Weight: 97.2 kg

DRUGS (3)
  1. NIVOLUMAB [Concomitant]
     Active Substance: NIVOLUMAB
     Indication: NON-SMALL CELL LUNG CANCER
     Dates: start: 20210505
  2. NINTEDANIB [Suspect]
     Active Substance: NINTEDANIB
     Indication: NON-SMALL CELL LUNG CANCER
     Route: 048
     Dates: start: 20210505
  3. IPILIMUMAB [Concomitant]
     Active Substance: IPILIMUMAB
     Indication: NON-SMALL CELL LUNG CANCER
     Dates: start: 20210505

REACTIONS (4)
  - Hypoglycaemia [Unknown]
  - Hyperglycaemia [Unknown]
  - Dyspnoea [Unknown]
  - Hepatitis [Unknown]

NARRATIVE: CASE EVENT DATE: 20210507
